FAERS Safety Report 5915478-1 (Version None)
Quarter: 2008Q3

REPORT INFORMATION
  Report Type: 
  Country: None (occurrence: None)
  Receive Date: 20080909
  Receipt Date: 20071106
  Transmission Date: 20090109
  Serious: Yes (Other)
  Sender: FDA-Public Use
  Company Number: 163-20785-07091214 (0)

PATIENT
  Age: 56 Year
  Sex: Male

DRUGS (1)
  1. THALOMID [Suspect]
     Indication: MULTIPLE MYELOMA
     Dosage: 100-200 MG, DAILY, ORAL
     Route: 048
     Dates: start: 20060608, end: 20061101

REACTIONS (7)
  - DEEP VEIN THROMBOSIS [None]
  - FATIGUE [None]
  - NEUROPATHY PERIPHERAL [None]
  - PARAESTHESIA [None]
  - PRURITUS [None]
  - PULMONARY EMBOLISM [None]
  - TINNITUS [None]
